FAERS Safety Report 6209484-X (Version None)
Quarter: 2009Q2

REPORT INFORMATION
  Report Type: 
  Country: None (occurrence: None)
  Receive Date: 20090601
  Receipt Date: 20090211
  Transmission Date: 20091009
  Serious: No
  Sender: FDA-Public Use
  Company Number: A0768229A

PATIENT

DRUGS (1)
  1. AUGMENTIN ES-600 [Suspect]
     Route: 048

REACTIONS (1)
  - TOOTH DISCOLOURATION [None]
